FAERS Safety Report 8371296-9 (Version None)
Quarter: 2012Q2

REPORT INFORMATION
  Report Type: 
  Country: None (occurrence: None)
  Receive Date: 20120518
  Receipt Date: 20120510
  Transmission Date: 20120825
  Serious: Yes (Death, Other)
  Sender: FDA-Public Use
  Company Number: IT-EISAI INC-E7867-00264-SPO-IT

PATIENT
  Age: 10 Year
  Sex: Male

DRUGS (2)
  1. ETOPOSIDE [Concomitant]
     Route: 048
  2. GLIADEL [Suspect]
     Dosage: UNKNOWN
     Route: 018

REACTIONS (4)
  - DEATH [None]
  - NEUROLOGICAL DECOMPENSATION [None]
  - VOMITING [None]
  - HEADACHE [None]
